FAERS Safety Report 4427140-5 (Version None)
Quarter: 2004Q3

REPORT INFORMATION
  Report Type: 
  Country: None (occurrence: None)
  Receive Date: 20040726
  Receipt Date: 20040423
  Transmission Date: 20050211
  Serious: No
  Sender: FDA-Public Use
  Company Number: USA040465868

PATIENT
  Age: 82 Year
  Sex: Female
  Weight: 47 kg

DRUGS (7)
  1. FORTEO [Suspect]
     Indication: OSTEOPOROSIS
     Dosage: 20 UG DAY
     Dates: start: 20031201
  2. ALDACTONE [Concomitant]
  3. LASIX [Concomitant]
  4. PLAQUENIL [Concomitant]
  5. MULTIVITAMIN [Concomitant]
  6. STOOL SOFTENER (DOCUSATE SODIUM) [Concomitant]
  7. SENOKOT [Concomitant]

REACTIONS (3)
  - BLOOD IRON DECREASED [None]
  - CONSTIPATION [None]
  - HAEMOGLOBIN INCREASED [None]
